FAERS Safety Report 5488501-9 (Version None)
Quarter: 2007Q4

REPORT INFORMATION
  Report Type: 
  Country: None (occurrence: None)
  Receive Date: 20071017
  Receipt Date: 20071002
  Transmission Date: 20080405
  Serious: Yes (Other)
  Sender: FDA-Public Use
  Company Number: DE-GENENTECH-249320

PATIENT
  Sex: Female
  Weight: 100 kg

DRUGS (3)
  1. HERCEPTIN [Suspect]
     Indication: BREAST CANCER
     Dosage: 800 MG, Q3W
     Route: 042
     Dates: start: 20070522
  2. HERCEPTIN [Suspect]
     Dosage: 600 MG, UNK
     Dates: start: 20070703
  3. HERCEPTIN [Suspect]
     Dosage: 200 MG, UNK
     Dates: start: 20070807

REACTIONS (1)
  - PALMAR-PLANTAR ERYTHRODYSAESTHESIA SYNDROME [None]
